FAERS Safety Report 14281165 (Version 1)
Quarter: 2017Q4

REPORT INFORMATION
  Report Type: Spontaneous
  Country: US (occurrence: US)
  Receive Date: 20171213
  Receipt Date: 20171213
  Transmission Date: 20180321
  Serious: Yes (Death)
  Sender: FDA-Public Use
  Company Number: US-PERRIGO-17US030842

PATIENT
  Age: 55 Year
  Sex: Male

DRUGS (10)
  1. OXYCODONE [Suspect]
     Active Substance: OXYCODONE
     Indication: COMPLETED SUICIDE
     Dosage: UNKNOWN, UNKNOWN
     Route: 048
  2. ATENOLOL. [Suspect]
     Active Substance: ATENOLOL
     Indication: COMPLETED SUICIDE
     Dosage: UNKNOWN, UNKNOWN
     Route: 048
  3. OMEPRAZOLE. [Suspect]
     Active Substance: OMEPRAZOLE
     Indication: COMPLETED SUICIDE
     Dosage: UNKNOWN, UNKNOWN
     Route: 048
  4. ALLERGY [Suspect]
     Active Substance: UNSPECIFIED INGREDIENT
     Indication: COMPLETED SUICIDE
     Dosage: UNKNOWN, UNKNOWN
     Route: 048
  5. ARIPIPRAZOLE. [Suspect]
     Active Substance: ARIPIPRAZOLE
     Indication: COMPLETED SUICIDE
     Dosage: UNKNOWN, UNKNOWN
     Route: 048
  6. ACETAMINOPHEN. [Suspect]
     Active Substance: ACETAMINOPHEN
     Indication: COMPLETED SUICIDE
     Dosage: UNKNOWN, UNKNOWN
     Route: 048
  7. METHADONE [Suspect]
     Active Substance: METHADONE HYDROCHLORIDE
     Indication: COMPLETED SUICIDE
     Dosage: UNKNOWN, UNKNOWN
     Route: 048
  8. DULOXETINE. [Suspect]
     Active Substance: DULOXETINE
     Indication: COMPLETED SUICIDE
     Dosage: UNKNOWN, UNKNOWN
     Route: 048
  9. TRAZODONE [Suspect]
     Active Substance: TRAZODONE HYDROCHLORIDE
     Indication: COMPLETED SUICIDE
     Dosage: UNKNOWN, UNKNOWN
     Route: 048
  10. GABAPENTIN. [Suspect]
     Active Substance: GABAPENTIN
     Indication: COMPLETED SUICIDE
     Dosage: UNKNOWN, UNKNOWN
     Route: 048

REACTIONS (1)
  - Death [Fatal]
